FAERS Safety Report 7311854-3 (Version None)
Quarter: 2011Q1

REPORT INFORMATION
  Report Type: 
  Country: None (occurrence: None)
  Receive Date: 20110224
  Receipt Date: 20100809
  Transmission Date: 20110831
  Serious: Yes (Hospitalization, Other)
  Sender: FDA-Public Use
  Company Number: US-BAYER-201025158NA

PATIENT
  Sex: Female
  Weight: 63.492 kg

DRUGS (5)
  1. YASMIN [Suspect]
     Indication: ORAL CONTRACEPTION
     Dosage: UNK
     Route: 048
     Dates: start: 20030101, end: 20071201
  2. TRAMADOL HCL [Concomitant]
     Dosage: 50 MG, UNK
     Route: 048
     Dates: start: 20071201, end: 20071201
  3. IBUPROFEN [Concomitant]
     Dates: start: 20051201
  4. TRINESSA [Concomitant]
     Indication: ORAL CONTRACEPTION
  5. TRIPHASIL-21 [Concomitant]
     Indication: ORAL CONTRACEPTION
     Dosage: UNK
     Dates: start: 20071101

REACTIONS (6)
  - LUNG INFECTION [None]
  - DEEP VEIN THROMBOSIS [None]
  - THROMBOSIS [None]
  - PULMONARY EMBOLISM [None]
  - DYSPNOEA [None]
  - CHEST DISCOMFORT [None]
